FAERS Safety Report 13721270 (Version 1)
Quarter: 2017Q3

REPORT INFORMATION
  Report Type: Spontaneous
  Country: US (occurrence: US)
  Receive Date: 20170705
  Receipt Date: 20170705
  Transmission Date: 20171127
  Serious: Yes (Other)
  Sender: FDA-Public Use
  Company Number: None

PATIENT
  Age: 33 Year
  Sex: Male
  Weight: 63.9 kg

DRUGS (2)
  1. MULTIVITAMIN [Concomitant]
     Active Substance: VITAMINS
  2. PODOFILOX. [Suspect]
     Active Substance: PODOFILOX
     Indication: ANOGENITAL WARTS
     Route: 061
     Dates: start: 20170616, end: 20170701

REACTIONS (4)
  - Erythema [None]
  - Skin exfoliation [None]
  - Wound secretion [None]
  - Application site burn [None]

NARRATIVE: CASE EVENT DATE: 20170703
